FAERS Safety Report 9173737 (Version 3)
Quarter: 2013Q2

REPORT INFORMATION
  Report Type: Spontaneous
  Country: US (occurrence: US)
  Receive Date: 20130320
  Receipt Date: 20130509
  Transmission Date: 20140414
  Serious: No
  Sender: FDA-Public Use
  Company Number: US-NAPPMUNDI-USA-2013-0099977

PATIENT
  Sex: Female

DRUGS (3)
  1. BUTRANS [Suspect]
     Indication: PAIN
     Dosage: 20 MCG/HR, WEEKLY
     Route: 062
  2. SYNTHROID [Concomitant]
     Indication: THYROID DISORDER
     Dosage: 1 TABLET DAILY
     Route: 048
  3. NORCO [Concomitant]
     Indication: PAIN
     Dosage: 1-2 TABLETS, 5/325 MG , EVERY 4 HOURS AS NEEDED
     Route: 048

REACTIONS (9)
  - Application site burn [Unknown]
  - Application site scar [Unknown]
  - Application site rash [Not Recovered/Not Resolved]
  - Application site pain [Not Recovered/Not Resolved]
  - Application site pruritus [Unknown]
  - Application site erythema [Not Recovered/Not Resolved]
  - Application site urticaria [Unknown]
  - Application site vesicles [Unknown]
  - Unevaluable event [Unknown]
